FAERS Safety Report 4822081-3 (Version None)
Quarter: 2005Q4

REPORT INFORMATION
  Report Type: 
  Country: None (occurrence: None)
  Receive Date: 20051103
  Receipt Date: 20051020
  Transmission Date: 20060501
  Serious: Yes (Other)
  Sender: FDA-Public Use
  Company Number: 032-41

PATIENT
  Sex: Female

DRUGS (10)
  1. TEVETEN [Suspect]
     Indication: HYPERTENSION
     Dates: start: 20050408
  2. CLONAZEPAM [Concomitant]
  3. LAMOTRIGINE [Concomitant]
  4. PHENYTOIN [Concomitant]
  5. LERCANIDIPINE [Concomitant]
  6. CO-DANTHRUSATE [Concomitant]
  7. FYBOGEL [Concomitant]
  8. GTN SPRAY [Concomitant]
  9. ASPIRIN [Concomitant]
  10. TEGRETOL [Concomitant]

REACTIONS (3)
  - CONDITION AGGRAVATED [None]
  - CONVERSION DISORDER [None]
  - EPILEPSY [None]
